FAERS Safety Report 4749567-4 (Version None)
Quarter: 2005Q3

REPORT INFORMATION
  Report Type: 
  Country: None (occurrence: None)
  Receive Date: 20050822
  Receipt Date: 20050601
  Transmission Date: 20060218
  Serious: Yes (Death)
  Sender: FDA-Public Use
  Company Number: US-GLAXOSMITHKLINE-A0570826A

PATIENT

DRUGS (2)
  1. SEREVENT [Suspect]
     Indication: ASTHMA
     Route: 055
  2. UNKNOWN [Concomitant]

REACTIONS (1)
  - DEATH [None]
